FAERS Safety Report 12947734 (Version 15)
Quarter: 2022Q1

REPORT INFORMATION
  Report Type: Other
  Country: CA (occurrence: CA)
  Receive Date: 20161117
  Receipt Date: 20220126
  Transmission Date: 20220423
  Serious: Yes (Hospitalization, Other)
  Sender: FDA-Public Use
  Company Number: CA-002147023-PHHY2016CA155689

PATIENT
  Age: 60 Year
  Sex: Female

DRUGS (10)
  1. XOLAIR [Suspect]
     Active Substance: OMALIZUMAB
     Indication: Asthma
     Route: 058
     Dates: start: 20140618
  2. XOLAIR [Suspect]
     Active Substance: OMALIZUMAB
     Route: 058
     Dates: start: 201601
  3. XOLAIR [Suspect]
     Active Substance: OMALIZUMAB
     Route: 058
     Dates: start: 201612, end: 201612
  4. XOLAIR [Suspect]
     Active Substance: OMALIZUMAB
     Route: 058
     Dates: start: 201701
  5. XOLAIR [Suspect]
     Active Substance: OMALIZUMAB
     Route: 058
     Dates: start: 201703
  6. XOLAIR [Suspect]
     Active Substance: OMALIZUMAB
     Route: 058
     Dates: start: 201704, end: 201802
  7. XOLAIR [Suspect]
     Active Substance: OMALIZUMAB
     Route: 058
     Dates: start: 20210922
  8. VENTOLIN [Concomitant]
     Active Substance: ALBUTEROL SULFATE
     Indication: Cough
  9. SPIRIVA [Concomitant]
     Active Substance: TIOTROPIUM BROMIDE MONOHYDRATE
  10. SYMBICORT [Concomitant]
     Active Substance: BUDESONIDE\FORMOTEROL FUMARATE DIHYDRATE

REACTIONS (29)
  - Bronchitis [Unknown]
  - Illness [Unknown]
  - Exercise tolerance decreased [Unknown]
  - Chronic obstructive pulmonary disease [Unknown]
  - Diabetes mellitus [Unknown]
  - Pulmonary function test decreased [Unknown]
  - Respiratory distress [Unknown]
  - Syncope [Unknown]
  - Sarcoidosis [Unknown]
  - Pneumonia [Unknown]
  - Insomnia [Unknown]
  - Dysstasia [Unknown]
  - Spinal disorder [Unknown]
  - Hypokinesia [Unknown]
  - Dyspnoea [Unknown]
  - Sensitivity to weather change [Unknown]
  - Gait disturbance [Unknown]
  - Joint effusion [Unknown]
  - Fall [Unknown]
  - Ligament rupture [Unknown]
  - Oropharyngeal pain [Unknown]
  - Ear pain [Unknown]
  - Nasopharyngitis [Unknown]
  - Arthropathy [Unknown]
  - Cough [Unknown]
  - Hypersensitivity [Recovering/Resolving]
  - Upper respiratory tract infection [Unknown]
  - Asthma [Unknown]
  - Wrong technique in product usage process [Unknown]

NARRATIVE: CASE EVENT DATE: 20150101
